FAERS Safety Report 7018076-4 (Version None)
Quarter: 2010Q3

REPORT INFORMATION
  Report Type: 
  Country: None (occurrence: None)
  Receive Date: 20100923
  Receipt Date: 20100920
  Transmission Date: 20110219
  Serious: Yes (Hospitalization, Other)
  Sender: FDA-Public Use
  Company Number: ACO_02161_2010

PATIENT
  Sex: Female
  Weight: 58.0604 kg

DRUGS (2)
  1. AMPYRA [Suspect]
     Indication: MULTIPLE SCLEROSIS
     Dosage: (10 MG, BID ORAL), (DF)
     Route: 048
     Dates: start: 20100501, end: 20100701
  2. AMPYRA [Suspect]
     Indication: MULTIPLE SCLEROSIS
     Dosage: (10 MG, BID ORAL), (DF)
     Route: 048
     Dates: start: 20100801

REACTIONS (2)
  - DRUG EFFECT DECREASED [None]
  - HERPES ZOSTER [None]
